FAERS Safety Report 8618721-3 (Version None)
Quarter: 2012Q3

REPORT INFORMATION
  Report Type: 
  Country: None (occurrence: None)
  Receive Date: 20120815
  Receipt Date: 20120815
  Transmission Date: 20120928
  Serious: Yes (Other)
  Sender: FDA-Public Use
  Company Number: None

PATIENT
  Sex: Female

DRUGS (1)
  1. ENBREL [Suspect]
     Indication: PSORIASIS
     Dosage: 50MG QW SQ
     Route: 058
     Dates: start: 20120614

REACTIONS (2)
  - CONDITION AGGRAVATED [None]
  - DEPRESSION [None]
